FAERS Safety Report 10449259 (Version 1)
Quarter: 2014Q3

REPORT INFORMATION
  Report Type: Spontaneous
  Country: CH (occurrence: CH)
  Receive Date: 20140912
  Receipt Date: 20140912
  Transmission Date: 20150326
  Serious: Yes (Death)
  Sender: FDA-Public Use
  Company Number: CH-JNJFOC-20140906582

PATIENT
  Age: 77 Year
  Sex: Female
  Weight: 60 kg

DRUGS (14)
  1. TRAMADOL MEPHA [Concomitant]
     Indication: PAIN
     Route: 048
     Dates: end: 20140601
  2. NOVALGIN [Concomitant]
     Active Substance: METAMIZOLE SODIUM
     Indication: PAIN
     Route: 048
  3. KEFZOL [Suspect]
     Active Substance: CEFAZOLIN SODIUM
     Indication: INFECTION PROPHYLAXIS
     Route: 042
     Dates: start: 20140520, end: 20140520
  4. IMODIUM [Concomitant]
     Active Substance: LOPERAMIDE HYDROCHLORIDE
     Route: 048
     Dates: end: 20140530
  5. PERENTEROL [Concomitant]
     Active Substance: SACCHAROMYCES CEREVISIAE
     Indication: DIARRHOEA
     Route: 048
     Dates: end: 20140530
  6. ELTROXIN [Concomitant]
     Active Substance: LEVOTHYROXINE
     Indication: HYPOTHYROIDISM
     Route: 048
     Dates: end: 20140530
  7. ZURCAL [Concomitant]
     Active Substance: PANTOPRAZOLE SODIUM
     Route: 065
     Dates: end: 20140530
  8. DAFALGAN [Suspect]
     Active Substance: ACETAMINOPHEN
     Indication: PAIN
     Route: 048
     Dates: start: 2014, end: 20140530
  9. XARELTO [Suspect]
     Active Substance: RIVAROXABAN
     Indication: THROMBOSIS PROPHYLAXIS
     Route: 048
     Dates: start: 20140521, end: 20140530
  10. PASPERTIN [Concomitant]
     Active Substance: METOCLOPRAMIDE HYDROCHLORIDE
     Route: 048
  11. DORMICUM [Concomitant]
     Active Substance: MIDAZOLAM\MIDAZOLAM HYDROCHLORIDE
     Route: 065
     Dates: end: 20140530
  12. HYDROCHLOROTHIAZIDE. [Suspect]
     Active Substance: HYDROCHLOROTHIAZIDE
     Indication: HYPERTENSION
     Route: 048
     Dates: start: 20140220, end: 20140601
  13. BILOL [Concomitant]
     Active Substance: BISOPROLOL
     Indication: HYPERTENSIVE HEART DISEASE
     Route: 065
     Dates: end: 20140601
  14. CALCIMAGON [Concomitant]
     Active Substance: CALCIUM
     Route: 048
     Dates: end: 20140601

REACTIONS (6)
  - Deep vein thrombosis [Fatal]
  - Drug ineffective [Fatal]
  - Haemolytic anaemia [Fatal]
  - Renal infarct [Fatal]
  - Pulmonary embolism [Fatal]
  - Jaundice acholuric [Fatal]

NARRATIVE: CASE EVENT DATE: 2014
